FAERS Safety Report 6231999-9 (Version None)
Quarter: 2009Q2

REPORT INFORMATION
  Report Type: 
  Country: None (occurrence: None)
  Receive Date: 20090612
  Receipt Date: 20090609
  Transmission Date: 20091009
  Serious: Yes (Death)
  Sender: FDA-Public Use
  Company Number: GB-WYE-G03825509

PATIENT
  Age: 33 Year
  Sex: Female

DRUGS (4)
  1. EFFEXOR XR [Suspect]
     Dosage: 225 MG 1X PER 1 DAY, ORAL, 150 MG 1X PER 1 DAY, ORAL
     Route: 048
  2. CLOZAPINE [Concomitant]
  3. ATENOLOL [Concomitant]
  4. VALPROATE SODIUM [Concomitant]

REACTIONS (1)
  - DRUG TOXICITY [None]
